FAERS Safety Report 15271023 (Version 3)
Quarter: 2019Q3

REPORT INFORMATION
  Report Type: Report from Study
  Country: US (occurrence: US)
  Receive Date: 20180813
  Receipt Date: 20190827
  Transmission Date: 20191004
  Serious: No
  Sender: FDA-Public Use
  Company Number: PHEH2018US033405

PATIENT
  Age: 36 Year
  Sex: Female
  Weight: 58.5 kg

DRUGS (3)
  1. PRENATAL [Concomitant]
     Active Substance: VITAMINS
     Indication: PRODUCT USED FOR UNKNOWN INDICATION
     Dosage: UNK UNK, QD
     Route: 065
     Dates: start: 20171208
  2. GILENYA [Suspect]
     Active Substance: FINGOLIMOD HYDROCHLORIDE
     Indication: PATERNAL EXPOSURE DURING PREGNANCY
     Dosage: FETAL DRUG EXPOSURE VIA PARTNER: NOT PROVIDED
     Route: 050
  3. BABY ASPIRIN [Concomitant]
     Active Substance: ASPIRIN
     Indication: PRODUCT USED FOR UNKNOWN INDICATION
     Dosage: UNK UNK, QD
     Route: 065
     Dates: start: 20171208, end: 20180622

REACTIONS (2)
  - Exposure via partner [Unknown]
  - Normal newborn [Unknown]

NARRATIVE: CASE EVENT DATE: 20180910
